FAERS Safety Report 20750245 (Version 1)
Quarter: 2022Q2

REPORT INFORMATION
  Report Type: Spontaneous
  Country: US (occurrence: None)
  Receive Date: 20220426
  Receipt Date: 20220426
  Transmission Date: 20220720
  Serious: Yes (Hospitalization)
  Sender: FDA-Public Use
  Company Number: None

PATIENT
  Age: 35 Year
  Sex: Male
  Weight: 114.9 kg

DRUGS (7)
  1. ONCASPAR [Suspect]
     Active Substance: PEGASPARGASE
     Dosage: OTHER STRENGTH : 3750 UNIT;?
     Dates: end: 20220331
  2. VINCRISTINE SULFATE [Suspect]
     Active Substance: VINCRISTINE SULFATE
     Dates: end: 20220331
  3. CYCLOPHOSPHAMIDE [Suspect]
     Active Substance: CYCLOPHOSPHAMIDE
     Dates: end: 20220317
  4. CYTARABINE [Suspect]
     Active Substance: CYTARABINE
     Dates: end: 20220327
  5. MERCAPTOPURINE [Suspect]
     Active Substance: MERCAPTOPURINE
     Dates: end: 20220330
  6. METHOTREXATE [Suspect]
     Active Substance: METHOTREXATE
     Dates: end: 20220405
  7. RITUXIMAB [Suspect]
     Active Substance: RITUXIMAB
     Dates: end: 20220325

REACTIONS (5)
  - Feeling abnormal [None]
  - Chills [None]
  - Febrile neutropenia [None]
  - Diarrhoea [None]
  - Colitis [None]

NARRATIVE: CASE EVENT DATE: 20220405
